FAERS Safety Report 7418273-X (Version None)
Quarter: 2011Q2

REPORT INFORMATION
  Report Type: 
  Country: None (occurrence: None)
  Receive Date: 20110415
  Receipt Date: 20110408
  Transmission Date: 20111010
  Serious: Yes (Hospitalization)
  Sender: FDA-Public Use
  Company Number: US-AMGEN-USACT2011018958

PATIENT
  Age: 70 Year
  Sex: Male
  Weight: 104 kg

DRUGS (3)
  1. CISPLATIN [Concomitant]
     Indication: OESOPHAGEAL ADENOCARCINOMA
     Dosage: 40 MG/M2, Q2WK
     Dates: start: 20101021
  2. DOCETAXEL [Concomitant]
     Indication: OESOPHAGEAL ADENOCARCINOMA
     Dosage: 40 MG/M2, Q2WK
     Dates: start: 20101021
  3. PANITUMUMAB [Suspect]
     Indication: OESOPHAGEAL ADENOCARCINOMA
     Dosage: 6 MG/KG, Q2WK
     Dates: start: 20101021

REACTIONS (4)
  - DEHYDRATION [None]
  - DYSPNOEA [None]
  - FATIGUE [None]
  - MUSCULAR WEAKNESS [None]
